FAERS Safety Report 6236661-4 (Version None)
Quarter: 2009Q2

REPORT INFORMATION
  Report Type: 
  Country: None (occurrence: None)
  Receive Date: 20090619
  Receipt Date: 20081210
  Transmission Date: 20091009
  Serious: No
  Sender: FDA-Public Use
  Company Number: US-ASTRAZENECA-2008UW27657

PATIENT
  Age: 43 Year
  Sex: Male
  Weight: 93 kg

DRUGS (2)
  1. ATACAND [Suspect]
     Indication: HYPERTENSION
     Dosage: 16 MG
     Route: 048
  2. LUNESTA [Concomitant]

REACTIONS (3)
  - ASTHENIA [None]
  - FEELING ABNORMAL [None]
  - PAIN IN EXTREMITY [None]
